FAERS Safety Report 11940403 (Version 1)
Quarter: 2016Q1

REPORT INFORMATION
  Report Type: Spontaneous
  Country: US (occurrence: US)
  Receive Date: 20160122
  Receipt Date: 20160122
  Transmission Date: 20160526
  Serious: No
  Sender: FDA-Public Use
  Company Number: US-DYAX CORP.-2015DX000221

PATIENT
  Age: 14 Year
  Sex: Female
  Weight: 47.67 kg

DRUGS (3)
  1. DOXYCYCLINE. [Concomitant]
     Active Substance: DOXYCYCLINE
     Indication: ACNE
     Route: 065
  2. KALBITOR [Suspect]
     Active Substance: ECALLANTIDE
     Indication: HEREDITARY ANGIOEDEMA
     Route: 065
     Dates: start: 20150503, end: 20150503
  3. KALBITOR [Suspect]
     Active Substance: ECALLANTIDE
     Route: 065
     Dates: start: 20150503

REACTIONS (3)
  - Therapeutic response decreased [Unknown]
  - Dizziness [Recovered/Resolved]
  - Fatigue [Recovered/Resolved]

NARRATIVE: CASE EVENT DATE: 20150503
